FAERS Safety Report 9321545 (Version 1)
Quarter: 2013Q2

REPORT INFORMATION
  Report Type: Spontaneous
  Country: FI (occurrence: None)
  Receive Date: 20130528
  Receipt Date: 20130528
  Transmission Date: 20140414
  Serious: Yes (Death)
  Sender: FDA-Public Use
  Company Number: 2013P1006166

PATIENT
  Age: 86 Year
  Sex: Female
  Weight: 75 kg

DRUGS (5)
  1. FENTANYL [Suspect]
     Indication: HIP SURGERY
     Route: 008
  2. FENTANYL [Suspect]
     Indication: HIP SURGERY
     Route: 008
  3. FENTANYL [Suspect]
     Route: 008
  4. BUPIVACAINE [Suspect]
     Indication: HIP SURGERY
     Route: 008
  5. LEVOBUPIVACAINE [Suspect]
     Route: 008

REACTIONS (3)
  - Paraplegia [None]
  - Radiculitis [None]
  - Disease complication [None]
